FAERS Safety Report 11621524 (Version 3)
Quarter: 2015Q4

REPORT INFORMATION
  Report Type: Spontaneous
  Country: IT (occurrence: IT)
  Receive Date: 20151013
  Receipt Date: 20151027
  Transmission Date: 20160304
  Serious: Yes (Hospitalization)
  Sender: FDA-Public Use
  Company Number: IT-AUROBINDO-AUR-APL-2015-09002

PATIENT
  Age: 76 Year
  Sex: Female

DRUGS (5)
  1. DIURESIX                           /01036501/ [Concomitant]
     Indication: PRODUCT USED FOR UNKNOWN INDICATION
     Route: 065
  2. LOSARTAN. [Suspect]
     Active Substance: LOSARTAN
     Indication: HYPERTENSION
     Dosage: 12.5 MG DAILY
     Route: 048
     Dates: start: 20150617, end: 20150630
  3. CLEXANE [Concomitant]
     Active Substance: ENOXAPARIN SODIUM
     Indication: PRODUCT USED FOR UNKNOWN INDICATION
     Route: 065
  4. CARVEDILOL. [Suspect]
     Active Substance: CARVEDILOL
     Indication: HYPERTENSION
     Dosage: 12.5 MG DAILY
     Route: 048
     Dates: start: 20150617, end: 20150630
  5. LOSARTAN. [Suspect]
     Active Substance: LOSARTAN
     Dosage: 12.5 MG DAILY
     Route: 048
     Dates: start: 20150617, end: 20150630

REACTIONS (1)
  - Syncope [Recovering/Resolving]

NARRATIVE: CASE EVENT DATE: 20150626
